FAERS Safety Report 18410457 (Version 1)
Quarter: 2020Q4

REPORT INFORMATION
  Report Type: Spontaneous
  Country: US (occurrence: US)
  Receive Date: 20201021
  Receipt Date: 20201021
  Transmission Date: 20210114
  Serious: No
  Sender: FDA-Public Use
  Company Number: US-NEUROCRINE BIOSCIENCES INC.-2020NBI03738

PATIENT
  Age: 68 Year
  Sex: Male

DRUGS (4)
  1. RYTARY [Suspect]
     Active Substance: CARBIDOPA\LEVODOPA
     Indication: PRODUCT USED FOR UNKNOWN INDICATION
  2. LEVODOPA [Suspect]
     Active Substance: LEVODOPA
     Dosage: DOSE DECREASED
  3. LEVODOPA [Suspect]
     Active Substance: LEVODOPA
     Indication: PRODUCT USED FOR UNKNOWN INDICATION
  4. ONGENTYS [Suspect]
     Active Substance: OPICAPONE
     Indication: PARKINSON^S DISEASE
     Dates: start: 20200916, end: 20201002

REACTIONS (1)
  - Dyskinesia [Unknown]

NARRATIVE: CASE EVENT DATE: 2020
